FAERS Safety Report 8718851 (Version 2)
Quarter: 2013Q4

REPORT INFORMATION
  Report Type: Spontaneous
  Country: US (occurrence: US)
  Receive Date: 20120810
  Receipt Date: 20131105
  Transmission Date: 20140711
  Serious: Yes (Other)
  Sender: FDA-Public Use
  Company Number: US-009507513-1207USA011966

PATIENT
  Age: 56 Year
  Sex: Female

DRUGS (13)
  1. PRINIVIL [Suspect]
     Route: 048
  2. RHINOCORT AQUA [Suspect]
     Route: 045
  3. NEXIUM [Suspect]
     Route: 048
  4. SYMBICORT [Suspect]
     Route: 055
  5. PROLIA [Suspect]
     Dosage: 7 MON
  6. CELEXA [Suspect]
     Dosage: UNK
  7. HYDROCODONE [Suspect]
     Dosage: 10MG / 325MG
  8. HYDROCODONE [Suspect]
     Dosage: 5 MG/ 325MGUNK
  9. CALCIUM (UNSPECIFIED) (+) VITAMIN D (UNSPECIFIED) [Concomitant]
  10. REQUIP [Concomitant]
  11. LAMICTAL [Concomitant]
  12. DEPAKOTE [Concomitant]
  13. LIPITOR [Concomitant]
     Route: 048

REACTIONS (20)
  - Intervertebral disc protrusion [Unknown]
  - Pain [Unknown]
  - Tinnitus [Unknown]
  - Nerve compression [Unknown]
  - Activities of daily living impaired [Unknown]
  - Gait disturbance [Unknown]
  - Osteoporosis [Unknown]
  - Mastoid disorder [Unknown]
  - Multiple fractures [Unknown]
  - Weight increased [Unknown]
  - Malaise [Unknown]
  - Dysstasia [Unknown]
  - Abdominal discomfort [Unknown]
  - Hearing impaired [Unknown]
  - Drug ineffective [Unknown]
  - Paraesthesia [Unknown]
  - Bone fragmentation [Unknown]
  - Intervertebral disc disorder [Unknown]
  - Back pain [Unknown]
  - Drug intolerance [Unknown]
